FAERS Safety Report 14117075 (Version 1)
Quarter: 2017Q4

REPORT INFORMATION
  Report Type: Spontaneous
  Country: US (occurrence: US)
  Receive Date: 20171023
  Receipt Date: 20171023
  Transmission Date: 20180321
  Serious: No
  Sender: FDA-Public Use
  Company Number: US-BAYER-2017-184942

PATIENT
  Sex: Female

DRUGS (1)
  1. LOTRIMIN ULTRA ANTIFUNGAL [Suspect]
     Active Substance: BUTENAFINE HYDROCHLORIDE
     Dosage: (PUT ON CUE TIP AND DAB IT ON NAILS)
     Route: 061
     Dates: start: 2013, end: 20170924

REACTIONS (3)
  - Therapeutic response unexpected [None]
  - Drug prescribing error [Unknown]
  - Drug administered at inappropriate site [Unknown]
